FAERS Safety Report 8954116 (Version 1)
Quarter: 2012Q4

REPORT INFORMATION
  Report Type: 
  Country: US (occurrence: US)
  Receive Date: 20121207
  Receipt Date: 20121207
  Transmission Date: 20130627
  Serious: Yes (Other)
  Sender: FDA-Public Use
  Company Number: US-GENZYME-LEUK-1000318

PATIENT
  Sex: Male

DRUGS (3)
  1. LEUKINE [Suspect]
     Indication: PROSTATE CANCER
     Dosage: 500 mcg, qd
     Route: 065
  2. LEUKINE [Suspect]
     Dosage: 500 mcg, qd (18 days); in month
     Route: 065
  3. LEUKINE [Suspect]
     Dosage: 250 mcg, qd (11 days); in month
     Route: 065
     Dates: end: 201211

REACTIONS (1)
  - Prostatic specific antigen increased [Not Recovered/Not Resolved]
